FAERS Safety Report 12741554 (Version 1)
Quarter: 2016Q3

REPORT INFORMATION
  Report Type: Spontaneous
  Country: US (occurrence: US)
  Receive Date: 20160913
  Receipt Date: 20160913
  Transmission Date: 20161109
  Serious: Yes (Other)
  Sender: FDA-Public Use
  Company Number: None

PATIENT
  Age: 84 Year
  Sex: Male
  Weight: 83.92 kg

DRUGS (6)
  1. TRAMADOL HYDROCHLORIDE. [Suspect]
     Active Substance: TRAMADOL HYDROCHLORIDE
     Indication: TOOTH EXTRACTION
     Dosage: 1 3 DAILY MAX MOUTH
     Route: 048
     Dates: start: 20160816, end: 20160816
  2. TRAMADOL HYDROCHLORIDE. [Suspect]
     Active Substance: TRAMADOL HYDROCHLORIDE
     Indication: PAIN
     Dosage: 1 3 DAILY MAX MOUTH
     Route: 048
     Dates: start: 20160816, end: 20160816
  3. ATORVASTATIN [Concomitant]
     Active Substance: ATORVASTATIN
  4. NEXIUM [Concomitant]
     Active Substance: ESOMEPRAZOLE MAGNESIUM
  5. ASPIRIN. [Concomitant]
     Active Substance: ASPIRIN
  6. POMEGRANATE [Concomitant]
     Active Substance: POMEGRANATE

REACTIONS (7)
  - Balance disorder [None]
  - Nausea [None]
  - Headache [None]
  - Dizziness [None]
  - Anxiety [None]
  - Pain [None]
  - Decreased appetite [None]

NARRATIVE: CASE EVENT DATE: 20160816
